FAERS Safety Report 5372176-3 (Version None)
Quarter: 2007Q2

REPORT INFORMATION
  Report Type: 
  Country: None (occurrence: None)
  Receive Date: 20070627
  Receipt Date: 20070621
  Transmission Date: 20071010
  Serious: Yes (Other)
  Sender: FDA-Public Use
  Company Number: A0659209A

PATIENT

DRUGS (3)
  1. LAMICTAL [Suspect]
     Route: 048
  2. DOXEPIN HCL [Suspect]
     Indication: SLEEP DISORDER
     Route: 065
  3. SLEEPING MEDICATION [Suspect]
     Indication: SLEEP DISORDER
     Route: 065

REACTIONS (2)
  - CONVULSION [None]
  - DRUG INTERACTION [None]
